FAERS Safety Report 12902161 (Version 1)
Quarter: 2016Q4

REPORT INFORMATION
  Report Type: Spontaneous
  Country: US (occurrence: US)
  Receive Date: 20161102
  Receipt Date: 20161102
  Transmission Date: 20170207
  Serious: Yes (Death)
  Sender: FDA-Public Use
  Company Number: US-PFIZER INC-2016506039

PATIENT
  Age: 67 Year
  Sex: Male
  Weight: 72 kg

DRUGS (11)
  1. ONDANSETRON [Concomitant]
     Active Substance: ONDANSETRON
     Indication: NAUSEA
     Dosage: 4MG TABLET BY MOUTH
     Route: 048
     Dates: start: 2016
  2. HALOPERIDOL. [Concomitant]
     Active Substance: HALOPERIDOL
     Indication: VOMITING
     Dosage: 5MG, 8-16 DROPS UNDER THE TONGUE EVERY 4 HOURS
     Dates: start: 2016
  3. LORAZEPAM. [Concomitant]
     Active Substance: LORAZEPAM
     Indication: VOMITING
     Dosage: 1MG, 2-4 DROPS UNDER THE TONGUE EVERY 4 HOURS
     Dates: start: 2016
  4. LORAZEPAM. [Concomitant]
     Active Substance: LORAZEPAM
     Indication: NAUSEA
  5. LORAZEPAM. [Concomitant]
     Active Substance: LORAZEPAM
     Indication: DEPRESSION
  6. OXYCODONE [Concomitant]
     Active Substance: OXYCODONE
     Indication: PAIN
     Dosage: 10 MG, AS NEEDED, UP TO 3 TIMES A DAY
     Dates: start: 2016
  7. XALKORI [Suspect]
     Active Substance: CRIZOTINIB
     Indication: NEOPLASM MALIGNANT
     Dosage: 250 MG, 2X/DAY
     Route: 048
     Dates: start: 20160212
  8. DOCUSATE [Concomitant]
     Active Substance: DOCUSATE
     Indication: CONSTIPATION PROPHYLAXIS
     Dosage: 100 MG, 2X/DAY, MORNING AND EVENING
     Route: 048
     Dates: start: 2016
  9. DEXAMETHASONE. [Concomitant]
     Active Substance: DEXAMETHASONE
     Indication: NAUSEA
     Dosage: 2 MG, 3X/DAY
     Route: 048
     Dates: start: 2016
  10. LORAZEPAM. [Concomitant]
     Active Substance: LORAZEPAM
     Indication: RESTLESSNESS
  11. LORAZEPAM. [Concomitant]
     Active Substance: LORAZEPAM
     Indication: SEIZURE

REACTIONS (2)
  - Weight decreased [Unknown]
  - Neoplasm progression [Fatal]
